FAERS Safety Report 23267451 (Version 1)
Quarter: 2023Q4

REPORT INFORMATION
  Report Type: Report from Study
  Country: GB (occurrence: GB)
  Receive Date: 20231206
  Receipt Date: 20231206
  Transmission Date: 20240110
  Serious: Yes (Hospitalization, Other)
  Sender: FDA-Public Use
  Company Number: GB-JAZZ PHARMACEUTICALS-2023-GB-024122

PATIENT
  Age: 25 Year
  Sex: Male

DRUGS (1)
  1. EPIDIOLEX [Suspect]
     Active Substance: CANNABIDIOL
     Indication: Lennox-Gastaut syndrome
     Dosage: UNK
     Dates: start: 2021

REACTIONS (6)
  - Loss of consciousness [Unknown]
  - Seizure [Unknown]
  - Oxygen saturation decreased [Unknown]
  - Diverticulitis [Unknown]
  - Abdominal discomfort [Unknown]
  - Weight decreased [Unknown]
